FAERS Safety Report 8816093 (Version 1)
Quarter: 2012Q4

REPORT INFORMATION
  Report Type: 
  Country: US (occurrence: US)
  Receive Date: 20120928
  Receipt Date: 20120928
  Transmission Date: 20130627
  Serious: Yes (Other)
  Sender: FDA-Public Use
  Company Number: US-PFIZER INC-2012240290

PATIENT
  Age: 53 Year
  Sex: Female
  Weight: 77.1 kg

DRUGS (2)
  1. EFFEXOR [Suspect]
     Indication: DEPRESSION
     Dosage: 150 mg, UNK
     Dates: start: 2005
  2. EFFEXOR [Suspect]
     Dosage: 37.5 mg, UNK

REACTIONS (5)
  - Wrong technique in drug usage process [Unknown]
  - Drug dependence [Unknown]
  - Aphagia [Unknown]
  - Malaise [Unknown]
  - Vomiting [Unknown]
